FAERS Safety Report 6260820-8 (Version None)
Quarter: 2009Q3

REPORT INFORMATION
  Report Type: 
  Country: None (occurrence: None)
  Receive Date: 20090707
  Receipt Date: 20090624
  Transmission Date: 20100115
  Serious: Yes (Other)
  Sender: FDA-Public Use
  Company Number: 2009S1011285

PATIENT
  Age: 48 Year
  Sex: Male

DRUGS (10)
  1. LAMOTRIGINE [Suspect]
     Indication: HYPERTENSION
     Dosage: ORAL
     Route: 048
  2. ENALAPRIL MALEATE [Suspect]
     Indication: HYPERTENSION
     Dosage: 1DF;TWICE A DAY; ORAL
     Route: 048
  3. OXCARBAZEPINE [Suspect]
     Indication: CEREBROVASCULAR ACCIDENT
     Dosage: 2.5 DF;DAILY; ORAL
     Route: 048
     Dates: start: 20050101
  4. METOPROLOL SUCCINATE [Suspect]
     Indication: DRUG USE FOR UNKNOWN INDICATION
     Dosage: 1 DF;TWICE A DAY; ORAL
     Route: 048
  5. TARDYFERON FOLSAURE (FERRO-FOLSAN /00023601/) [Suspect]
     Indication: HYPOVITAMINOSIS
     Dosage: 1 DF;DAILY; ORA
     Route: 048
  6. SIMVASTATIN [Suspect]
     Indication: LIPID METABOLISM DISORDER
     Dosage: 1 DF; ORAL; DAILY; ORAL
     Route: 048
  7. BACLOFEN [Suspect]
     Indication: DRUG USE FOR UNKNOWN INDICATION
     Dosage: 1 DF; TWICE A DAY; ORAL
     Route: 048
  8. HYDROCHLOROTHIAZIDE [Suspect]
     Indication: HYPERTENSION
     Dosage: 1 DF;DAILY; ORAL
     Route: 048
  9. ESCITALOPRAM [Suspect]
     Indication: DEPRESSION
     Dosage: 1.5 DF;DAILY; ORAL
     Route: 048
  10. LORAZEPAM [Concomitant]

REACTIONS (1)
  - PURPURA [None]
